FAERS Safety Report 5508174-6 (Version None)
Quarter: 2007Q4

REPORT INFORMATION
  Report Type: 
  Country: None (occurrence: None)
  Receive Date: 20071106
  Receipt Date: 20071030
  Transmission Date: 20080405
  Serious: Yes (Hospitalization)
  Sender: FDA-Public Use
  Company Number: US-SANOFI-SYNTHELABO-A03200705806

PATIENT
  Sex: Male
  Weight: 90.7 kg

DRUGS (9)
  1. FLUOROURACIL [Suspect]
     Indication: COLORECTAL CANCER
     Route: 042
     Dates: start: 20070917, end: 20070917
  2. LEUCOVORIN [Suspect]
     Indication: COLORECTAL CANCER
     Route: 042
     Dates: start: 20070917, end: 20070917
  3. PROTONIX [Concomitant]
     Dosage: UNK
     Route: 048
  4. ATENOLOL [Concomitant]
     Dosage: UNK
     Route: 048
  5. NIMODIPINE [Concomitant]
     Dosage: UNK
     Route: 048
     Dates: end: 20070901
  6. FOLIC ACID [Concomitant]
     Route: 048
  7. PREDNISONE [Concomitant]
     Route: 048
  8. AVASTIN [Suspect]
     Indication: COLORECTAL CANCER
     Route: 042
     Dates: start: 20070917, end: 20070917
  9. ELOXATIN [Suspect]
     Indication: COLORECTAL CANCER
     Route: 042
     Dates: start: 20070917, end: 20070917

REACTIONS (5)
  - ABDOMINAL PAIN [None]
  - CHOLECYSTITIS [None]
  - IDIOPATHIC THROMBOCYTOPENIC PURPURA [None]
  - LEUKOCYTOSIS [None]
  - SUPRAVENTRICULAR TACHYCARDIA [None]
